FAERS Safety Report 7003573-8 (Version None)
Quarter: 2010Q3

REPORT INFORMATION
  Report Type: 
  Country: None (occurrence: None)
  Receive Date: 20100920
  Receipt Date: 20100906
  Transmission Date: 20110219
  Serious: Yes (Death)
  Sender: FDA-Public Use
  Company Number: CO-GENENTECH-306357

PATIENT
  Sex: Female

DRUGS (1)
  1. LUCENTIS [Suspect]
     Indication: MACULAR DEGENERATION
     Dosage: 0.3 ML, 1/MONTH
     Route: 031
     Dates: start: 20100310, end: 20100410

REACTIONS (1)
  - MYOCARDIAL INFARCTION [None]
